FAERS Safety Report 18468293 (Version 1)
Quarter: 2020Q4

REPORT INFORMATION
  Report Type: Spontaneous
  Country: US (occurrence: US)
  Receive Date: 20201105
  Receipt Date: 20201105
  Transmission Date: 20210114
  Serious: Yes (Other)
  Sender: FDA-Public Use
  Company Number: US-PFIZER INC-2020427812

PATIENT
  Age: 51 Year
  Sex: Female

DRUGS (1)
  1. SUTENT [Suspect]
     Active Substance: SUNITINIB MALATE
     Dosage: 50 MG, CYCLIC (DAILY 28 DAYS ON AND 14 DAYS OFF)
     Route: 048
     Dates: end: 20200929

REACTIONS (5)
  - Neoplasm progression [Unknown]
  - Nausea [Unknown]
  - Diarrhoea [Unknown]
  - Hypertension [Unknown]
  - Fatigue [Unknown]

NARRATIVE: CASE EVENT DATE: 20200929
